FAERS Safety Report 6740775-X (Version None)
Quarter: 2010Q2

REPORT INFORMATION
  Report Type: 
  Country: None (occurrence: None)
  Receive Date: 20100524
  Receipt Date: 20100510
  Transmission Date: 20101027
  Serious: Yes (Disabling, Other)
  Sender: FDA-Public Use
  Company Number: ACO_00836_2010

PATIENT
  Age: 59 Year
  Sex: Female
  Weight: 61.2356 kg

DRUGS (2)
  1. AMPYRA [Suspect]
     Indication: MULTIPLE SCLEROSIS
     Dosage: 10 MG QD ORAL, 10 MG BID ORAL
     Route: 048
     Dates: start: 20100413, end: 20100401
  2. AMPYRA [Suspect]
     Indication: MULTIPLE SCLEROSIS
     Dosage: 10 MG QD ORAL, 10 MG BID ORAL
     Route: 048
     Dates: start: 20100401

REACTIONS (7)
  - CRYING [None]
  - DISTURBANCE IN ATTENTION [None]
  - INSOMNIA [None]
  - MEMORY IMPAIRMENT [None]
  - MONOPLEGIA [None]
  - MOVEMENT DISORDER [None]
  - NAUSEA [None]
